FAERS Safety Report 9618709 (Version 1)
Quarter: 2013Q4

REPORT INFORMATION
  Report Type: Spontaneous
  Country: US (occurrence: US)
  Receive Date: 20131014
  Receipt Date: 20131014
  Transmission Date: 20140711
  Serious: Yes (Hospitalization)
  Sender: FDA-Public Use
  Company Number: US-BAYER-2013-123730

PATIENT
  Age: 45 Year
  Sex: Female

DRUGS (5)
  1. OCELLA [Suspect]
  2. AMOXICILLIN [Concomitant]
  3. AUGMENTIN [Concomitant]
     Dosage: UNK
     Dates: start: 20110419
  4. PHENERGAN WITH CODEINE [Concomitant]
  5. DAYQUIL [DEXTROMET HBR,PARACET,PSEUDOEPH HCL] [Concomitant]

REACTIONS (2)
  - Pulmonary embolism [None]
  - Deep vein thrombosis [None]
